FAERS Safety Report 5067944-1 (Version None)
Quarter: 2006Q3

REPORT INFORMATION
  Report Type: 
  Country: None (occurrence: None)
  Receive Date: 20060710
  Receipt Date: 20050721
  Transmission Date: 20061208
  Serious: Yes (Hospitalization)
  Sender: FDA-Public Use
  Company Number: US-JNJFOC-20050704324

PATIENT
  Age: 63 Year
  Sex: Female

DRUGS (2)
  1. MOTRIN IB [Suspect]
     Indication: ARTHRITIS
     Dosage: 200MG QD-BID
     Dates: start: 20040801, end: 20040901
  2. ANAPROX [Concomitant]

REACTIONS (3)
  - DYSPEPSIA [None]
  - NAUSEA [None]
  - VOMITING [None]
